FAERS Safety Report 6031441-7 (Version None)
Quarter: 2008Q4

REPORT INFORMATION
  Report Type: 
  Country: None (occurrence: None)
  Receive Date: 20081224
  Receipt Date: 20081020
  Transmission Date: 20090506
  Serious: Yes (Other)
  Sender: FDA-Public Use
  Company Number: FEI2008-1950

PATIENT
  Age: 40 Year
  Sex: Female
  Weight: 79.3795 kg

DRUGS (9)
  1. PARAGARD T 380A [Suspect]
     Indication: CONTRACEPTION
     Dosage: INTRA-UTERINE
     Route: 015
     Dates: start: 20081016, end: 20081021
  2. PROZAC [Concomitant]
  3. LORAZEPAM [Concomitant]
  4. NASAL SPRAY [Concomitant]
  5. B VITAMIN (B-KOMPLEX) [Concomitant]
  6. ASCORBIC ACID [Concomitant]
  7. CALCIUM (CALCIUM) [Concomitant]
  8. ESTROGEN (ESTRADIOL) [Concomitant]
  9. PROGESTERONE [Concomitant]

REACTIONS (10)
  - ABDOMINAL PAIN [None]
  - CHEST PAIN [None]
  - HYPERSENSITIVITY [None]
  - MEDICATION ERROR [None]
  - MENSTRUATION IRREGULAR [None]
  - PANIC ATTACK [None]
  - PELVIC PAIN [None]
  - PRURITUS [None]
  - URTICARIA [None]
  - WHEEZING [None]
